FAERS Safety Report 4313530-8 (Version None)
Quarter: 2004Q1

REPORT INFORMATION
  Report Type: 
  Country: None (occurrence: None)
  Receive Date: 20040308
  Receipt Date: 20040128
  Transmission Date: 20041129
  Serious: Yes (Other)
  Sender: FDA-Public Use
  Company Number: FR-GLAXOSMITHKLINE-B0321470A

PATIENT
  Age: 21 Year
  Sex: Female
  Weight: 48 kg

DRUGS (2)
  1. DEROXAT [Suspect]
     Indication: DEPRESSION
     Route: 048
     Dates: start: 20010101
  2. TRINORDIOL [Concomitant]
     Indication: ORAL CONTRACEPTION
     Route: 048

REACTIONS (5)
  - CHILLS [None]
  - HYPERHIDROSIS [None]
  - HYPERTHERMIA [None]
  - MEDICATION ERROR [None]
  - NIGHT SWEATS [None]
